FAERS Safety Report 20751302 (Version 3)
Quarter: 2022Q4

REPORT INFORMATION
  Report Type: Spontaneous
  Country: US (occurrence: US)
  Receive Date: 20220426
  Receipt Date: 20221027
  Transmission Date: 20230113
  Serious: No
  Sender: FDA-Public Use
  Company Number: US-BRISTOL-MYERS SQUIBB COMPANY-2022-028365

PATIENT
  Age: 73 Year
  Sex: Female
  Weight: 79.3 kg

DRUGS (2)
  1. REVLIMID [Suspect]
     Active Substance: LENALIDOMIDE
     Indication: Plasma cell myeloma
     Dosage: FREQ: D1-14 EVERY 21 DAYS
     Route: 048
     Dates: start: 20210701
  2. REVLIMID [Suspect]
     Active Substance: LENALIDOMIDE
     Dosage: D1-D14Q21DAY
     Route: 048
     Dates: start: 20210719

REACTIONS (7)
  - Swelling [Not Recovered/Not Resolved]
  - Rash [Recovered/Resolved]
  - Fall [Unknown]
  - Gait inability [Not Recovered/Not Resolved]
  - Contusion [Not Recovered/Not Resolved]
  - Diarrhoea [Not Recovered/Not Resolved]
  - Off label use [Unknown]
